FAERS Safety Report 9700812 (Version 2)
Quarter: 2013Q4

REPORT INFORMATION
  Report Type: Report from Study
  Country: NL (occurrence: NL)
  Receive Date: 20131121
  Receipt Date: 20131127
  Transmission Date: 20140711
  Serious: Yes (Life-Threatening)
  Sender: FDA-Public Use
  Company Number: PHHY2013NL133060

PATIENT
  Sex: 0

DRUGS (7)
  1. SANDIMMUN [Suspect]
     Indication: STEM CELL TRANSPLANT
     Dosage: 210 MG, UNK
     Route: 042
     Dates: start: 20131027, end: 20131029
  2. SANDIMMUN [Suspect]
     Dosage: 300 MG, UNK
     Route: 042
     Dates: start: 20131030, end: 20131104
  3. SANDIMMUN [Suspect]
     Dosage: 430 MG, UNK
     Route: 042
     Dates: start: 20131105, end: 20131114
  4. SANDIMMUN [Suspect]
     Dosage: 640 MG, UNK
     Route: 042
     Dates: start: 20131115
  5. CYCLOPHOSPHAMIDE [Concomitant]
     Dosage: 1000 MG, UNK
     Route: 042
     Dates: start: 20131017, end: 20131018
  6. CYCLOPHOSPHAMIDE [Concomitant]
     Dosage: 3500 MG, UNK
     Route: 042
     Dates: start: 20131025, end: 20131026
  7. FLUDARABINE [Concomitant]
     Dosage: 56 MG, UNK
     Route: 042
     Dates: start: 20131017, end: 20131021

REACTIONS (1)
  - Respiratory failure [Not Recovered/Not Resolved]
